FAERS Safety Report 11595707 (Version 1)
Quarter: 2015Q4

REPORT INFORMATION
  Report Type: Spontaneous
  Country: GB (occurrence: GB)
  Receive Date: 20151006
  Receipt Date: 20151006
  Transmission Date: 20160304
  Serious: Yes (Hospitalization)
  Sender: FDA-Public Use
  Company Number: GB-TEVA-597204ACC

PATIENT
  Age: 68 Year
  Sex: Male

DRUGS (12)
  1. PERINDOPRIL [Concomitant]
     Active Substance: PERINDOPRIL
  2. CLOPIDOGREL [Suspect]
     Active Substance: CLOPIDOGREL BISULFATE
     Dosage: 75 MILLIGRAM DAILY;
     Route: 048
     Dates: start: 2010, end: 20150918
  3. ALLOPURINOL. [Concomitant]
     Active Substance: ALLOPURINOL
  4. TAMSULOSIN [Concomitant]
     Active Substance: TAMSULOSIN
  5. DICLOFENAC [Suspect]
     Active Substance: DICLOFENAC
     Indication: OSTEOARTHRITIS
     Dosage: 150 MILLIGRAM DAILY;
     Route: 048
     Dates: start: 2013, end: 20150918
  6. ASPIRIN. [Suspect]
     Active Substance: ASPIRIN
     Dosage: 75 MILLIGRAM DAILY;
     Route: 048
     Dates: start: 2010, end: 20150918
  7. METOPROLOL [Concomitant]
     Active Substance: METOPROLOL
  8. EZETIMIBE. [Concomitant]
     Active Substance: EZETIMIBE
  9. NIFEDIPINE. [Concomitant]
     Active Substance: NIFEDIPINE
  10. PARACETAMOL [Concomitant]
     Active Substance: ACETAMINOPHEN
  11. ATORVASTATIN [Concomitant]
     Active Substance: ATORVASTATIN
  12. LEVOTHYROXINE. [Concomitant]
     Active Substance: LEVOTHYROXINE

REACTIONS (4)
  - Faeces discoloured [Recovering/Resolving]
  - Haemoglobin decreased [Recovering/Resolving]
  - Gastrointestinal haemorrhage [Recovering/Resolving]
  - Blood urea increased [Recovering/Resolving]

NARRATIVE: CASE EVENT DATE: 20150916
